FAERS Safety Report 17195984 (Version 2)
Quarter: 2019Q4

REPORT INFORMATION
  Report Type: Spontaneous
  Country: CA (occurrence: CA)
  Receive Date: 20191224
  Receipt Date: 20191231
  Transmission Date: 20200122
  Serious: Yes (Hospitalization)
  Sender: FDA-Public Use
  Company Number: NVSC2019CA077880

PATIENT
  Age: 44 Year
  Sex: Male
  Weight: 101 kg

DRUGS (20)
  1. NOREPINEPHRINE. [Concomitant]
     Active Substance: NOREPINEPHRINE
     Indication: PRODUCT USED FOR UNKNOWN INDICATION
     Dosage: UNK
     Route: 065
  2. MIDAZOLAM [Concomitant]
     Active Substance: MIDAZOLAM HYDROCHLORIDE
     Indication: PRODUCT USED FOR UNKNOWN INDICATION
     Dosage: UNK
     Route: 065
  3. FUROSEMIDE. [Concomitant]
     Active Substance: FUROSEMIDE
     Indication: PRODUCT USED FOR UNKNOWN INDICATION
     Dosage: UNK
     Route: 065
  4. VASOPRESSIN. [Concomitant]
     Active Substance: VASOPRESSIN
     Indication: PRODUCT USED FOR UNKNOWN INDICATION
     Dosage: UNK
     Route: 065
  5. ARGATROBAN. [Suspect]
     Active Substance: ARGATROBAN
     Dosage: 25 MG, QD
     Route: 040
  6. ARGATROBAN. [Suspect]
     Active Substance: ARGATROBAN
     Dosage: 50 MG, QD
     Route: 040
  7. FENTANYL CITRATE. [Concomitant]
     Active Substance: FENTANYL CITRATE
     Indication: PRODUCT USED FOR UNKNOWN INDICATION
     Dosage: UNK
     Route: 065
  8. ARGATROBAN. [Suspect]
     Active Substance: ARGATROBAN
     Dosage: 5 MG, QD
     Route: 040
  9. TICAGRELOR. [Concomitant]
     Active Substance: TICAGRELOR
     Indication: PRODUCT USED FOR UNKNOWN INDICATION
     Dosage: UNK
     Route: 065
  10. SODIUM BICARBONATE. [Concomitant]
     Active Substance: SODIUM BICARBONATE
     Indication: PRODUCT USED FOR UNKNOWN INDICATION
     Dosage: UNK
     Route: 065
  11. ACETYLSALICYLIC ACID [Concomitant]
     Active Substance: ASPIRIN
     Indication: PRODUCT USED FOR UNKNOWN INDICATION
     Dosage: UNK
     Route: 065
  12. NITRIC OXIDE. [Concomitant]
     Active Substance: NITRIC OXIDE
     Indication: PRODUCT USED FOR UNKNOWN INDICATION
     Dosage: UNK
     Route: 065
  13. ARGATROBAN. [Suspect]
     Active Substance: ARGATROBAN
     Indication: ANTICOAGULANT THERAPY
     Dosage: 250 MG (AT ARANGE OF 1.5 ML/HOUR =250MG/250 ML)
     Route: 065
  14. MILRINONE [Concomitant]
     Active Substance: MILRINONE
     Indication: PRODUCT USED FOR UNKNOWN INDICATION
     Dosage: UNK
     Route: 065
  15. ARGATROBAN. [Suspect]
     Active Substance: ARGATROBAN
     Dosage: 4 MG, QD
     Route: 040
  16. ARGATROBAN. [Suspect]
     Active Substance: ARGATROBAN
     Dosage: 0.5 MICROGRAM/KILOGRAM
     Route: 041
  17. ARGATROBAN. [Suspect]
     Active Substance: ARGATROBAN
     Dosage: 3 UNK (MICROGRAM/KILOGRAM)
     Route: 041
  18. HEPARIN SODIUM. [Suspect]
     Active Substance: HEPARIN SODIUM
     Indication: PRODUCT USED FOR UNKNOWN INDICATION
     Dosage: 4000 IU, QD
     Route: 065
  19. LACTATED RINGERS SOLUTION [Concomitant]
     Active Substance: CALCIUM CHLORIDE\POTASSIUM CHLORIDE\SODIUM CHLORIDE\SODIUM LACTATE
     Indication: PRODUCT USED FOR UNKNOWN INDICATION
     Dosage: UNK
     Route: 065
  20. EPINEPHRINE. [Concomitant]
     Active Substance: EPINEPHRINE
     Indication: PRODUCT USED FOR UNKNOWN INDICATION
     Dosage: UNK
     Route: 065

REACTIONS (14)
  - Disseminated intravascular coagulation [Unknown]
  - Right ventricular dysfunction [Unknown]
  - Thrombosis in device [Unknown]
  - Post procedural haemorrhage [Unknown]
  - Mediastinal disorder [Unknown]
  - Acute respiratory distress syndrome [Unknown]
  - Intestinal ischaemia [Unknown]
  - Pericardial effusion [Unknown]
  - Gastrointestinal disorder [Unknown]
  - Haemorrhage [Unknown]
  - Cardiac failure [Unknown]
  - Transfusion-related acute lung injury [Unknown]
  - Mediastinal haemorrhage [Unknown]
  - Therapeutic product effect decreased [Unknown]
